FAERS Safety Report 10673467 (Version 3)
Quarter: 2015Q4

REPORT INFORMATION
  Report Type: Spontaneous
  Country: US (occurrence: US)
  Receive Date: 20141224
  Receipt Date: 20151002
  Transmission Date: 20160304
  Serious: Yes (Hospitalization, Other)
  Sender: FDA-Public Use
  Company Number: US-PFIZER INC-2014351134

PATIENT
  Age: 56 Year
  Sex: Female
  Weight: 102 kg

DRUGS (1)
  1. LYRICA [Suspect]
     Active Substance: PREGABALIN
     Indication: FIBROMYALGIA
     Dosage: 200 MG, 2X/DAY
     Route: 048
     Dates: start: 2012

REACTIONS (10)
  - Mobility decreased [Not Recovered/Not Resolved]
  - Asthenia [Unknown]
  - Osteomyelitis [Unknown]
  - Foot deformity [Unknown]
  - Bone disorder [Unknown]
  - Cellulitis staphylococcal [Unknown]
  - Anaemia [Unknown]
  - Arthropathy [Unknown]
  - Infection [Unknown]
  - Flatulence [Unknown]

NARRATIVE: CASE EVENT DATE: 2013
